FAERS Safety Report 21253667 (Version 1)
Quarter: 2022Q3

REPORT INFORMATION
  Report Type: Spontaneous
  Country: US (occurrence: None)
  Receive Date: 20220824
  Receipt Date: 20220824
  Transmission Date: 20221027
  Serious: Yes (Hospitalization)
  Sender: FDA-Public Use
  Company Number: None

PATIENT
  Age: 73 Year
  Sex: Male
  Weight: 78.47 kg

DRUGS (1)
  1. ATENOLOL [Suspect]
     Active Substance: ATENOLOL
     Indication: Hypertension
     Dates: start: 20140908, end: 20211002

REACTIONS (3)
  - Syncope [None]
  - Bradycardia [None]
  - Diarrhoea [None]

NARRATIVE: CASE EVENT DATE: 20211001
